FAERS Safety Report 9565357 (Version 1)
Quarter: 2013Q3

REPORT INFORMATION
  Report Type: Spontaneous
  Country: US (occurrence: US)
  Receive Date: 20130930
  Receipt Date: 20130930
  Transmission Date: 20140515
  Serious: Yes (Hospitalization)
  Sender: FDA-Public Use
  Company Number: US-PFIZER INC-2013278044

PATIENT
  Age: 76 Year
  Sex: Male
  Weight: 86.2 kg

DRUGS (1)
  1. CELEBREX [Suspect]
     Indication: ARTHROPATHY
     Dosage: 200 MG, 1X/DAY

REACTIONS (1)
  - Aortic aneurysm [Unknown]
